FAERS Safety Report 10465202 (Version 2)
Quarter: 2014Q3

REPORT INFORMATION
  Report Type: Spontaneous
  Country: US (occurrence: US)
  Receive Date: 20140919
  Receipt Date: 20140919
  Transmission Date: 20150326
  Serious: Yes (Life-Threatening, Hospitalization)
  Sender: FDA-Public Use
  Company Number: US-MERZ NORTH AMERICA, INC.-14MRZ-00235

PATIENT
  Sex: Female
  Weight: 11.35 kg

DRUGS (1)
  1. CUVPOSA [Suspect]
     Active Substance: GLYCOPYRROLATE
     Indication: PRODUCT USED FOR UNKNOWN INDICATION
     Dosage: 1000 MCG
     Route: 048
     Dates: start: 20130920

REACTIONS (2)
  - Swollen tongue [None]
  - Tongue biting [None]
